FAERS Safety Report 19076805 (Version 1)
Quarter: 2021Q1

REPORT INFORMATION
  Report Type: Spontaneous
  Country: US (occurrence: US)
  Receive Date: 20210330
  Receipt Date: 20210330
  Transmission Date: 20210420
  Serious: Yes (Hospitalization)
  Sender: FDA-Public Use
  Company Number: None

PATIENT
  Age: 33 Year
  Sex: Female
  Weight: 112.05 kg

DRUGS (1)
  1. BAMLANIVIMAB. [Suspect]
     Active Substance: BAMLANIVIMAB
     Indication: COVID-19
     Dosage: ?          OTHER FREQUENCY:ONCE;?
     Route: 041
     Dates: start: 20210325, end: 20210325

REACTIONS (7)
  - Chest pain [None]
  - Diarrhoea [None]
  - Cough [None]
  - Urticaria [None]
  - Pruritus [None]
  - Pulmonary congestion [None]
  - Dyspnoea [None]

NARRATIVE: CASE EVENT DATE: 20210329
